FAERS Safety Report 5329634-7 (Version None)
Quarter: 2007Q1

REPORT INFORMATION
  Report Type: 
  Country: None (occurrence: None)
  Receive Date: 20070227
  Receipt Date: 20060126
  Transmission Date: 20070707
  Serious: Yes (Other)
  Sender: FDA-Public Use
  Company Number: 433904

PATIENT
  Sex: 0

DRUGS (8)
  1. ACCUTANE [Suspect]
     Indication: ACNE
     Dosage: ORAL
     Route: 048
     Dates: start: 20040801, end: 20050115
  2. SINGULAIR [Concomitant]
  3. ZYRTEC [Concomitant]
  4. CLARITIN [Concomitant]
  5. LORAZEPAM [Concomitant]
  6. TOPAMAX [Concomitant]
  7. ZOLOFT [Concomitant]
  8. PRENATAL VITAMINS (MINERALS NOS/MULTIVITAMIN NOS) [Concomitant]

REACTIONS (1)
  - ABORTION SPONTANEOUS [None]
